FAERS Safety Report 8543915-5 (Version None)
Quarter: 2012Q3

REPORT INFORMATION
  Report Type: 
  Country: None (occurrence: None)
  Receive Date: 20120727
  Receipt Date: 20120723
  Transmission Date: 20120928
  Serious: Yes (Hospitalization)
  Sender: FDA-Public Use
  Company Number: JP-009507513-1207JPN008762

PATIENT

DRUGS (11)
  1. TELAVIC [Suspect]
     Indication: HEPATITIS C
     Route: 048
     Dates: start: 20120514, end: 20120709
  2. LANSOPRAZOLE [Concomitant]
     Route: 048
     Dates: start: 20120514, end: 20120709
  3. LANSOPRAZOLE [Concomitant]
     Route: 048
     Dates: start: 20120514, end: 20120709
  4. REBETOL [Suspect]
     Route: 048
     Dates: end: 20120709
  5. ALLEGRA [Concomitant]
     Route: 048
     Dates: start: 20120518
  6. REBETOL [Suspect]
     Indication: HEPATITIS C
     Route: 048
     Dates: start: 20120514
  7. ALLOPURINOL [Concomitant]
     Indication: HEPATITIS C
     Route: 048
     Dates: start: 20120611
  8. REBETOL [Suspect]
     Route: 048
  9. MYSER (DIFLUPREDNATE) [Concomitant]
     Dosage: 5G/TUBE/DAY
     Route: 061
     Dates: start: 20120525
  10. PEG-INTRON [Suspect]
     Indication: HEPATITIS C
     Dosage: 1.5MCG/KG/WEEK
     Route: 058
     Dates: start: 20120514
  11. LANSOPRAZOLE [Concomitant]
     Indication: HEPATITIS C
     Route: 048
     Dates: start: 20120514

REACTIONS (1)
  - PANCREATITIS ACUTE [None]
